FAERS Safety Report 7130067-1 (Version None)
Quarter: 2010Q4

REPORT INFORMATION
  Report Type: 
  Country: None (occurrence: None)
  Receive Date: 20101201
  Receipt Date: 20101122
  Transmission Date: 20110411
  Serious: No
  Sender: FDA-Public Use
  Company Number: US-BIOGENIDEC-2010BI041495

PATIENT
  Age: 52 Year
  Sex: Female

DRUGS (3)
  1. TYSABRI [Suspect]
     Indication: MULTIPLE SCLEROSIS
     Route: 042
     Dates: start: 20080820, end: 20100101
  2. TYSABRI [Suspect]
     Route: 042
     Dates: start: 20100101, end: 20100101
  3. TYSABRI [Suspect]
     Route: 042
     Dates: start: 20100101

REACTIONS (2)
  - FATIGUE [None]
  - NEURALGIA [None]
